FAERS Safety Report 7711947-2 (Version None)
Quarter: 2011Q3

REPORT INFORMATION
  Report Type: 
  Country: None (occurrence: None)
  Receive Date: 20110826
  Receipt Date: 20110823
  Transmission Date: 20111222
  Serious: Yes (Hospitalization)
  Sender: FDA-Public Use
  Company Number: DE-BRISTOL-MYERS SQUIBB COMPANY-15856628

PATIENT
  Age: 71 Year
  Sex: Male
  Weight: 85 kg

DRUGS (4)
  1. ABILIFY [Suspect]
     Indication: BIPOLAR DISORDER
     Dosage: DOSE INCREASED-15MG IN THE MORNING,10MG-EVENING,DOSE WAS AGAIN REDUCED TO 10MG/DAY TAKEN 25MG
     Route: 048
     Dates: start: 20110527
  2. SEROQUEL [Suspect]
     Indication: MANIA
     Dosage: TAKEN 450MG
     Route: 048
  3. ABILIFY [Suspect]
     Indication: MANIA
     Dosage: DOSE INCREASED-15MG IN THE MORNING,10MG-EVENING,DOSE WAS AGAIN REDUCED TO 10MG/DAY TAKEN 25MG
     Route: 048
     Dates: start: 20110527
  4. VALPROIC ACID [Suspect]
     Indication: EPILEPSY
     Dosage: 1200MG
     Route: 048

REACTIONS (1)
  - ANGINA PECTORIS [None]
